FAERS Safety Report 7130746-6 (Version None)
Quarter: 2010Q4

REPORT INFORMATION
  Report Type: 
  Country: None (occurrence: None)
  Receive Date: 20101201
  Receipt Date: 20101122
  Transmission Date: 20110411
  Serious: Yes (Hospitalization)
  Sender: FDA-Public Use
  Company Number: US-ASTRAZENECA-2010SE55578

PATIENT
  Age: 67 Year
  Sex: Male

DRUGS (12)
  1. SEROQUEL XR [Suspect]
     Indication: ANXIETY
     Route: 048
  2. SEROQUEL XR [Suspect]
     Indication: HALLUCINATION, AUDITORY
     Route: 048
  3. SEROQUEL XR [Suspect]
     Route: 048
     Dates: start: 20101001
  4. SEROQUEL XR [Suspect]
     Route: 048
     Dates: start: 20101001
  5. SEROQUEL XR [Suspect]
     Route: 048
     Dates: start: 20101101
  6. SEROQUEL XR [Suspect]
     Route: 048
     Dates: start: 20101101
  7. SYMBICORT [Concomitant]
  8. NEURONTIN [Concomitant]
  9. ATIVAN [Concomitant]
  10. PAXIL [Concomitant]
  11. ALBUTEROL NEBULIZERS [Concomitant]
  12. ULTRAM [Concomitant]

REACTIONS (3)
  - CHRONIC OBSTRUCTIVE PULMONARY DISEASE [None]
  - DYSKINESIA [None]
  - HEADACHE [None]
